FAERS Safety Report 17044712 (Version 7)
Quarter: 2021Q2

REPORT INFORMATION
  Report Type: Report from Study
  Country: US (occurrence: US)
  Receive Date: 20191118
  Receipt Date: 20210428
  Transmission Date: 20210716
  Serious: Yes (Other)
  Sender: FDA-Public Use
  Company Number: NVSC2019US039378

PATIENT
  Sex: Female

DRUGS (1)
  1. COSENTYX [Suspect]
     Active Substance: SECUKINUMAB
     Indication: PRODUCT USED FOR UNKNOWN INDICATION
     Dosage: UNK
     Route: 065

REACTIONS (8)
  - Malaise [Unknown]
  - Breast cancer [Unknown]
  - Discomfort [Unknown]
  - Psoriatic arthropathy [Unknown]
  - Bone pain [Unknown]
  - Product dose omission issue [Unknown]
  - Road traffic accident [Unknown]
  - Intervertebral disc protrusion [Unknown]
